FAERS Safety Report 7056653-5 (Version None)
Quarter: 2010Q4

REPORT INFORMATION
  Report Type: 
  Country: None (occurrence: None)
  Receive Date: 20101019
  Receipt Date: 20101004
  Transmission Date: 20110411
  Serious: Yes (Hospitalization, Other)
  Sender: FDA-Public Use
  Company Number: CL-248-2010

PATIENT
  Age: 50 Year
  Sex: Male

DRUGS (1)
  1. CIPROFLOXACIN [Suspect]

REACTIONS (6)
  - ERYTHEMA [None]
  - HELLP SYNDROME [None]
  - HEPATOTOXICITY [None]
  - LEUKOPENIA [None]
  - PETIT MAL EPILEPSY [None]
  - STATUS EPILEPTICUS [None]
